FAERS Safety Report 23926017 (Version 1)
Quarter: 2024Q2

REPORT INFORMATION
  Report Type: Spontaneous
  Country: SE (occurrence: SE)
  Receive Date: 20240531
  Receipt Date: 20240531
  Transmission Date: 20240716
  Serious: Yes (Life-Threatening, Hospitalization)
  Sender: FDA-Public Use
  Company Number: None

PATIENT
  Age: 19 Year
  Sex: Female

DRUGS (3)
  1. ROPIVACAINE [Suspect]
     Active Substance: ROPIVACAINE
     Indication: Local anaesthesia
     Dosage: FORM OF ADMIN-SOLUTION FOR INJECTION
     Route: 067
     Dates: start: 20240513, end: 20240513
  2. ROPIVACAINE [Suspect]
     Active Substance: ROPIVACAINE
     Indication: Abortion
  3. CYTOTEC [Concomitant]
     Active Substance: MISOPROSTOL
     Indication: Product used for unknown indication
     Dosage: ACCORDING TO SCHEDULE, 4 VAGINAL AS THE START OF TREATMENT?FOA: TABLET
     Route: 067
     Dates: start: 20240513, end: 20240513

REACTIONS (3)
  - Seizure [Recovered/Resolved]
  - Maternal exposure during pregnancy [Recovered/Resolved]
  - Abdominal pain [Recovered/Resolved]

NARRATIVE: CASE EVENT DATE: 20240513
